FAERS Safety Report 19635424 (Version 1)
Quarter: 2021Q3

REPORT INFORMATION
  Report Type: Spontaneous
  Country: DE (occurrence: DE)
  Receive Date: 20210730
  Receipt Date: 20210730
  Transmission Date: 20211014
  Serious: Yes (Hospitalization)
  Sender: FDA-Public Use
  Company Number: NVSC2021DE170774

PATIENT
  Age: 52 Year
  Sex: Male

DRUGS (4)
  1. SUFENTANIL [Concomitant]
     Active Substance: SUFENTANIL
     Indication: MAINTENANCE OF ANAESTHESIA
     Dosage: UNK
     Route: 042
  2. ROPIVACAINE. [Suspect]
     Active Substance: ROPIVACAINE HYDROCHLORIDE
     Indication: NERVE BLOCK
     Dosage: 10 ML, ONCE/SINGLE
     Route: 042
  3. PROPOFOL. [Concomitant]
     Active Substance: PROPOFOL
     Indication: MAINTENANCE OF ANAESTHESIA
     Dosage: UNK
     Route: 042
  4. LIDOCAINE. [Suspect]
     Active Substance: LIDOCAINE
     Indication: NERVE BLOCK
     Dosage: 10 ML, ONCE/SINGLE INJECTION
     Route: 042

REACTIONS (7)
  - Facial paralysis [Unknown]
  - Dysphagia [Unknown]
  - Pyramidal tract syndrome [Unknown]
  - Altered state of consciousness [Unknown]
  - Aphasia [Unknown]
  - Apraxia [Unknown]
  - Hemiplegia [Unknown]
